FAERS Safety Report 7805135-9 (Version None)
Quarter: 2011Q4

REPORT INFORMATION
  Report Type: 
  Country: None (occurrence: None)
  Receive Date: 20111010
  Receipt Date: 20110927
  Transmission Date: 20120403
  Serious: Yes (Hospitalization, Other)
  Sender: FDA-Public Use
  Company Number: PHHY2011JP82629

PATIENT
  Age: 53 Year
  Sex: Male

DRUGS (4)
  1. PREDNISOLONE [Concomitant]
     Indication: NEPHROTIC SYNDROME
     Dosage: 40 MG, UNK
     Route: 048
  2. CYCLOSPORINE [Suspect]
     Indication: NEPHROTIC SYNDROME
     Dosage: 200 MG, DAILY
     Route: 048
  3. MIZORIBINE [Concomitant]
     Indication: NEPHROTIC SYNDROME
     Dosage: UNK UKN, UNK
     Route: 048
  4. PREDNISOLONE [Concomitant]
     Dosage: 4 MG, UNK

REACTIONS (3)
  - NEPHROTIC SYNDROME [None]
  - LIVER DISORDER [None]
  - DRUG INEFFECTIVE [None]
